FAERS Safety Report 5780536-1 (Version None)
Quarter: 2008Q2

REPORT INFORMATION
  Report Type: 
  Country: None (occurrence: None)
  Receive Date: 20080620
  Receipt Date: 20080613
  Transmission Date: 20081010
  Serious: Yes (Other)
  Sender: FDA-Public Use
  Company Number: GB-WYE-G01664208

PATIENT
  Sex: Male
  Weight: 61.3 kg

DRUGS (2)
  1. BENEFIX [Suspect]
     Indication: FACTOR IX DEFICIENCY
     Route: 042
     Dates: end: 20080401
  2. REFACTO [Suspect]
     Dosage: 500 IU EVERY 1 TOT
     Route: 042
     Dates: start: 20080401, end: 20080501

REACTIONS (1)
  - WRONG DRUG ADMINISTERED [None]
